FAERS Safety Report 11104063 (Version 1)
Quarter: 2015Q2

REPORT INFORMATION
  Report Type: Spontaneous
  Country: IT (occurrence: None)
  Receive Date: 20150507
  Receipt Date: 20150507
  Transmission Date: 20150821
  Serious: Yes (Hospitalization)
  Sender: FDA-Public Use
  Company Number: FK201502037

PATIENT
  Age: 74 Year

DRUGS (1)
  1. CEFTRIAXON (MANUFACTURER UNKNOWN) (CEFTRIAXON-DINATRIUM) (CEFTRIAXON-DINATRIUM) [Suspect]
     Active Substance: CEFTRIAXONE
     Indication: PYREXIA
     Dosage: NOT OTHERWISE SPECIFIED
     Route: 042
     Dates: start: 20150324, end: 20150324

REACTIONS (3)
  - Dyspnoea [None]
  - Hypotension [None]
  - Anaphylactic shock [None]

NARRATIVE: CASE EVENT DATE: 20150324
